FAERS Safety Report 9303507 (Version 1)
Quarter: 2013Q2

REPORT INFORMATION
  Report Type: Spontaneous
  Country: US (occurrence: US)
  Receive Date: 20130522
  Receipt Date: 20130522
  Transmission Date: 20140414
  Serious: No
  Sender: FDA-Public Use
  Company Number: US-PFIZER INC-2013152194

PATIENT
  Sex: Female
  Weight: 52 kg

DRUGS (6)
  1. LEVOTHYROXINE SODIUM [Suspect]
     Indication: HYPOTHYROIDISM
     Dosage: 88 UG, 1X/DAY
  2. LEVOTHYROXINE SODIUM [Suspect]
     Indication: TRI-IODOTHYRONINE DECREASED
  3. SYNTHROID [Suspect]
     Indication: HYPOTHYROIDISM
     Dosage: UNK
  4. SYNTHROID [Suspect]
     Indication: TRI-IODOTHYRONINE DECREASED
  5. LEVOTHROID [Suspect]
     Indication: HYPOTHYROIDISM
     Dosage: UNK
  6. LEVOTHROID [Suspect]
     Indication: TRI-IODOTHYRONINE DECREASED

REACTIONS (4)
  - Drug ineffective [Unknown]
  - Blood cholesterol increased [Unknown]
  - Feeling abnormal [Unknown]
  - Weight increased [Unknown]
